FAERS Safety Report 6903847-2 (Version None)
Quarter: 2010Q3

REPORT INFORMATION
  Report Type: 
  Country: None (occurrence: None)
  Receive Date: 20100804
  Receipt Date: 20090112
  Transmission Date: 20110219
  Serious: No
  Sender: FDA-Public Use
  Company Number: US-PFIZER INC-2008052540

PATIENT
  Sex: Female
  Weight: 58.1 kg

DRUGS (3)
  1. LYRICA [Suspect]
     Indication: DIABETIC NEUROPATHY
     Dosage: 75 MG, 2X/DAY
     Dates: start: 20080612
  2. LYRICA [Suspect]
     Indication: FIBROMYALGIA
  3. DESVENLAFAXINE [Concomitant]
     Dosage: UNK
     Route: 048

REACTIONS (2)
  - ASTHMA [None]
  - OEDEMA PERIPHERAL [None]
